FAERS Safety Report 4766459-5 (Version None)
Quarter: 2005Q3

REPORT INFORMATION
  Report Type: 
  Country: None (occurrence: None)
  Receive Date: 20050912
  Receipt Date: 20050901
  Transmission Date: 20060218
  Serious: Yes (Hospitalization)
  Sender: FDA-Public Use
  Company Number: DE-JNJFOC-20050900739

PATIENT
  Age: 26 Year
  Sex: Male

DRUGS (2)
  1. RISPERDAL CONSTA [Suspect]
     Route: 030
  2. RISPERDAL CONSTA [Suspect]
     Route: 030

REACTIONS (3)
  - HEPATIC ENZYME INCREASED [None]
  - HEPATITIS C [None]
  - HEPATITIS VIRAL [None]
